FAERS Safety Report 10729945 (Version 1)
Quarter: 2015Q1

REPORT INFORMATION
  Report Type: Spontaneous
  Country: US (occurrence: None)
  Receive Date: 20150120
  Receipt Date: 20150120
  Transmission Date: 20150721
  Serious: Yes (Disabling)
  Sender: FDA-Public Use
  Company Number: None

PATIENT
  Age: 40 Year
  Sex: Female
  Weight: 52.16 kg

DRUGS (1)
  1. VIIBRYD [Suspect]
     Active Substance: VILAZODONE HYDROCHLORIDE
     Indication: DEPRESSION
     Dosage: 1 PILL?ONCE DAILY?TAKEN BY MOUTH
     Route: 048
     Dates: start: 20140315, end: 20140331

REACTIONS (1)
  - Insomnia [None]

NARRATIVE: CASE EVENT DATE: 20140315
